FAERS Safety Report 9080003 (Version 1)
Quarter: 2013Q1

REPORT INFORMATION
  Report Type: Report from Study
  Country: US (occurrence: US)
  Receive Date: 20130130
  Receipt Date: 20130130
  Transmission Date: 20140127
  Serious: No
  Sender: FDA-Public Use
  Company Number: US-ABBOTT-12P-163-0977497-00

PATIENT
  Sex: Female
  Weight: 89.44 kg

DRUGS (3)
  1. HUMIRA [Suspect]
     Indication: SARCOIDOSIS
     Dates: start: 2011
  2. KENALOG INJECTIONS  (NON-ABBOTT) [Concomitant]
     Indication: POLYARTHRITIS
  3. UNKNOWN STEROID CREAM  (NON-ABBOTT) [Concomitant]
     Indication: PRODUCT USED FOR UNKNOWN INDICATION

REACTIONS (2)
  - Off label use [Not Recovered/Not Resolved]
  - Rheumatoid arthritis [Not Recovered/Not Resolved]
